FAERS Safety Report 6221389-7 (Version None)
Quarter: 2009Q2

REPORT INFORMATION
  Report Type: 
  Country: None (occurrence: None)
  Receive Date: 20090610
  Receipt Date: 20090604
  Transmission Date: 20091009
  Serious: Yes (Death)
  Sender: FDA-Public Use
  Company Number: US-ABBOTT-09P-163-0577895-00

PATIENT
  Sex: Female

DRUGS (2)
  1. SYNTHROID [Suspect]
     Indication: DRUG USE FOR UNKNOWN INDICATION
     Dates: start: 20080825, end: 20090521
  2. SYNTHROID [Suspect]
     Dates: start: 20090521

REACTIONS (2)
  - GASTROINTESTINAL HAEMORRHAGE [None]
  - THERAPY REGIMEN CHANGED [None]
